FAERS Safety Report 8807501 (Version 2)
Quarter: 2012Q4

REPORT INFORMATION
  Report Type: 
  Country: SE (occurrence: SE)
  Receive Date: 20120925
  Receipt Date: 20120930
  Transmission Date: 20130627
  Serious: Yes (Other)
  Sender: FDA-Public Use
  Company Number: SE-US-EMD SERONO, INC.-7140808

PATIENT
  Sex: Female

DRUGS (3)
  1. PERGOTIME [Suspect]
     Indication: ANOVULATORY CYCLE
     Dates: start: 20120307
  2. PERGOTIME [Suspect]
  3. PERGOTIME [Suspect]
     Dates: end: 201207

REACTIONS (5)
  - Abortion spontaneous [Recovered/Resolved]
  - Ectopic pregnancy [Recovered/Resolved]
  - Blood prolactin increased [Recovered/Resolved]
  - Progesterone abnormal [Recovered/Resolved]
  - Drug ineffective [Unknown]
